FAERS Safety Report 7355175-1 (Version None)
Quarter: 2011Q1

REPORT INFORMATION
  Report Type: 
  Country: None (occurrence: None)
  Receive Date: 20110316
  Receipt Date: 20110217
  Transmission Date: 20110831
  Serious: No
  Sender: FDA-Public Use
  Company Number: US-B.I. PHARMACEUTICALS,INC./RIDGEFIELD-2011-BP-00567BP

PATIENT
  Sex: Female

DRUGS (4)
  1. CARDIZEM [Concomitant]
     Indication: CORONARY ARTERY DISEASE
     Route: 048
  2. LASIX [Concomitant]
     Indication: CORONARY ARTERY DISEASE
     Route: 048
  3. LISINOPRIL [Concomitant]
     Indication: HYPERTENSION
     Route: 048
  4. PRADAXA [Suspect]
     Indication: ATRIAL FIBRILLATION
     Dosage: 300 MG
     Route: 048
     Dates: start: 20101101

REACTIONS (3)
  - NAUSEA [None]
  - ABDOMINAL DISTENSION [None]
  - DYSPEPSIA [None]
